FAERS Safety Report 15219527 (Version 1)
Quarter: 2018Q3

REPORT INFORMATION
  Report Type: Spontaneous
  Country: US (occurrence: US)
  Receive Date: 20180731
  Receipt Date: 20180731
  Transmission Date: 20181010
  Serious: No
  Sender: FDA-Public Use
  Company Number: US-APOTEX-2017AP019921

PATIENT
  Sex: Female

DRUGS (1)
  1. RISEDRONATE SODIUM TABLETS USP [Suspect]
     Active Substance: RISEDRONATE SODIUM
     Indication: PRODUCT USED FOR UNKNOWN INDICATION
     Dosage: UNK UNK, Q.M.T.
     Route: 065

REACTIONS (3)
  - Chest pain [Unknown]
  - Pain [Unknown]
  - Pain in extremity [Unknown]
